FAERS Safety Report 8336412-3 (Version None)
Quarter: 2012Q2

REPORT INFORMATION
  Report Type: 
  Country: None (occurrence: None)
  Receive Date: 20120504
  Receipt Date: 20120501
  Transmission Date: 20120825
  Serious: No
  Sender: FDA-Public Use
  Company Number: PHEH2012US008190

PATIENT
  Sex: Female
  Weight: 104.3 kg

DRUGS (6)
  1. VICODIN [Concomitant]
     Indication: PAIN
     Dosage: 500 UKN, PRN
     Route: 048
     Dates: start: 20110701
  2. NEURONTIN [Concomitant]
     Indication: NEUROPATHY PERIPHERAL
     Dosage: 2 UKN, QID
     Route: 048
     Dates: start: 20100701
  3. BACLOFEN [Concomitant]
     Dosage: 1 UKN, BID
     Route: 048
     Dates: start: 20100201
  4. GILENYA [Suspect]
     Indication: MULTIPLE SCLEROSIS
     Dosage: 0.5 MG, QD
     Route: 048
     Dates: start: 20120326
  5. DITROPAN XL [Concomitant]
     Indication: BLADDER DISORDER
     Dosage: 1 UKN, QD
     Route: 048
     Dates: start: 20090701
  6. LISINOPRIL [Concomitant]
     Dosage: 1 UKN, QD
     Route: 048

REACTIONS (3)
  - JOINT INJURY [None]
  - DIZZINESS [None]
  - FALL [None]
